FAERS Safety Report 10195984 (Version 2)
Quarter: 2014Q2

REPORT INFORMATION
  Report Type: Report from Study
  Country: JP (occurrence: JP)
  Receive Date: 20140527
  Receipt Date: 20140620
  Transmission Date: 20141212
  Serious: Yes (Hospitalization)
  Sender: FDA-Public Use
  Company Number: PHHY2014JP063989

PATIENT
  Age: 93 Year
  Sex: Female
  Weight: 37 kg

DRUGS (5)
  1. EXELON [Suspect]
     Indication: DEMENTIA ALZHEIMER^S TYPE
     Dosage: 4.5 MG, DAILY
     Route: 062
     Dates: start: 20120724, end: 20120809
  2. ARICEPT [Concomitant]
     Indication: DEMENTIA ALZHEIMER^S TYPE
     Dosage: 10 MG, UNK
     Route: 048
     Dates: end: 20120723
  3. METROM [Concomitant]
     Indication: INSOMNIA
     Dosage: 7.7 MG, UNK
     Route: 048
  4. OLMETEC [Concomitant]
     Indication: HYPERTENSION
     Dosage: 20 MG, UNK
     Route: 048
  5. GANATON [Concomitant]
     Indication: GASTRITIS
     Dosage: 150 MG, UNK
     Route: 048

REACTIONS (3)
  - Cardiopulmonary failure [Unknown]
  - Pulmonary oedema [Unknown]
  - Renal failure [Unknown]
